FAERS Safety Report 9476489 (Version 2)
Quarter: 2013Q3

REPORT INFORMATION
  Report Type: Spontaneous
  Country: US (occurrence: US)
  Receive Date: 20130826
  Receipt Date: 20130930
  Transmission Date: 20140515
  Serious: Yes (Hospitalization, Other)
  Sender: FDA-Public Use
  Company Number: US-GILEAD-2013-0081920

PATIENT
  Age: 54 Year
  Sex: Male

DRUGS (7)
  1. LETAIRIS [Suspect]
     Indication: PULMONARY HYPERTENSION
     Dosage: 5 MG, QD
     Dates: start: 20130730
  2. LETAIRIS [Suspect]
     Indication: SCLERODERMA
  3. ADVAIR [Concomitant]
  4. PROAIR                             /00139502/ [Concomitant]
  5. SPIRIVA [Concomitant]
  6. FLOMAX                             /00889901/ [Concomitant]
  7. LISINOPRIL/HYDROCHLOROTHIAZIDE [Concomitant]

REACTIONS (2)
  - Haemoptysis [Unknown]
  - Haemoglobin decreased [Unknown]
